FAERS Safety Report 9760349 (Version 1)
Quarter: 2013Q4

REPORT INFORMATION
  Report Type: Spontaneous
  Country: US (occurrence: US)
  Receive Date: 20131216
  Receipt Date: 20131216
  Transmission Date: 20140711
  Serious: No
  Sender: FDA-Public Use
  Company Number: US-GILEAD-2010-0029408

PATIENT
  Sex: Male
  Weight: 99.79 kg

DRUGS (17)
  1. LETAIRIS [Suspect]
     Indication: PULMONARY ARTERIAL HYPERTENSION
     Route: 048
     Dates: start: 20100504
  2. ATENOLOL [Concomitant]
  3. BUMEX [Concomitant]
  4. PREDNISONE [Concomitant]
  5. FOSAMAX [Concomitant]
  6. SINGULAIR [Concomitant]
  7. PRILOSEC [Concomitant]
  8. ALDACTONE [Concomitant]
  9. LASIX [Concomitant]
  10. LIPITOR [Concomitant]
  11. DIGOXIN [Concomitant]
  12. IRON [Concomitant]
  13. ASPIRIN [Concomitant]
  14. A-Z MULTIVITAMIN [Concomitant]
  15. LEXAPRO [Concomitant]
  16. ALBUTEROL [Concomitant]
  17. VITAMIN C [Concomitant]

REACTIONS (3)
  - Hypotension [Unknown]
  - Diarrhoea [Unknown]
  - Dyspnoea [Unknown]
